FAERS Safety Report 13913518 (Version 1)
Quarter: 2017Q3

REPORT INFORMATION
  Report Type: Spontaneous
  Country: US (occurrence: US)
  Receive Date: 20170828
  Receipt Date: 20170828
  Transmission Date: 20171127
  Serious: No
  Sender: FDA-Public Use
  Company Number: US-ROCHE-1136343

PATIENT
  Age: 17 Year
  Sex: Male

DRUGS (1)
  1. NUTROPIN [Suspect]
     Active Substance: SOMATROPIN
     Indication: HYPOTHALAMO-PITUITARY DISORDER
     Route: 058
     Dates: start: 200111, end: 200408

REACTIONS (1)
  - Eunuchoidism [Unknown]

NARRATIVE: CASE EVENT DATE: 200312
